FAERS Safety Report 8145627-9 (Version None)
Quarter: 2012Q1

REPORT INFORMATION
  Report Type: 
  Country: None (occurrence: None)
  Receive Date: 20120217
  Receipt Date: 20110310
  Transmission Date: 20120608
  Serious: No
  Sender: FDA-Public Use
  Company Number: US-ABBOTT-11P-163-0710672-00

PATIENT
  Age: 47 Year
  Sex: Female
  Weight: 68.1 kg

DRUGS (7)
  1. OMEPRAZOLE [Concomitant]
     Indication: PRODUCT USED FOR UNKNOWN INDICATION
  2. FEXOFENADINE [Concomitant]
     Indication: HYPERSENSITIVITY
  3. PATANOL [Concomitant]
     Indication: HYPERSENSITIVITY
     Route: 047
  4. CALCIUM/VITAMIN D [Concomitant]
     Indication: VITAMIN SUPPLEMENTATION
  5. IRON [Concomitant]
     Indication: MINERAL SUPPLEMENTATION
  6. SIMCOR [Suspect]
     Indication: BLOOD CHOLESTEROL INCREASED
     Dosage: 500/40MG 1 IN 1 D
     Dates: start: 20110215, end: 20110223
  7. FLONASE [Concomitant]
     Indication: HYPERSENSITIVITY

REACTIONS (3)
  - FLUSHING [None]
  - FEELING HOT [None]
  - CHILLS [None]
